FAERS Safety Report 7137379-6 (Version None)
Quarter: 2010Q4

REPORT INFORMATION
  Report Type: 
  Country: None (occurrence: None)
  Receive Date: 20101206
  Receipt Date: 20101123
  Transmission Date: 20110411
  Serious: Yes (Disabling, Other)
  Sender: FDA-Public Use
  Company Number: PHEH2009US11010

PATIENT
  Sex: Female

DRUGS (12)
  1. AREDIA [Suspect]
  2. FOSAMAX [Suspect]
  3. ACTONEL [Suspect]
  4. CALCIUM [Concomitant]
  5. MAGNESIUM [Concomitant]
  6. MIRAPEX ^PHARMACIA + UPJOHN^ [Concomitant]
  7. CLONAZEPAM [Concomitant]
  8. WELLBUTRIN [Concomitant]
  9. PAXIL [Concomitant]
  10. VITAMINS [Concomitant]
  11. PENICILLIN VK [Concomitant]
  12. VITAMIN D [Concomitant]

REACTIONS (20)
  - ANHEDONIA [None]
  - ANXIETY [None]
  - ATELECTASIS [None]
  - BONE DENSITY DECREASED [None]
  - BONE DISORDER [None]
  - CHEST PAIN [None]
  - CHRONIC OBSTRUCTIVE PULMONARY DISEASE [None]
  - DYSPNOEA [None]
  - GASTROINTESTINAL DISORDER [None]
  - IMPAIRED HEALING [None]
  - INJURY [None]
  - NEUTROPENIA [None]
  - ORAL DISORDER [None]
  - OSTEONECROSIS OF JAW [None]
  - OSTEOPOROSIS [None]
  - PAIN [None]
  - PAIN IN JAW [None]
  - SPINAL COMPRESSION FRACTURE [None]
  - TOOTH EXTRACTION [None]
  - WHITE BLOOD CELL COUNT DECREASED [None]
